FAERS Safety Report 5951696-4 (Version None)
Quarter: 2008Q4

REPORT INFORMATION
  Report Type: 
  Country: None (occurrence: None)
  Receive Date: 20081113
  Receipt Date: 20081106
  Transmission Date: 20090506
  Serious: No
  Sender: FDA-Public Use
  Company Number: DE-EISAI MEDIAL RESEARCH-E7273-00021-SPO-DE

PATIENT
  Sex: Male

DRUGS (1)
  1. TARGRETIN [Suspect]
     Dosage: UNKNOWN
     Route: 048

REACTIONS (1)
  - VISUAL IMPAIRMENT [None]
